FAERS Safety Report 13693041 (Version 1)
Quarter: 2017Q2

REPORT INFORMATION
  Report Type: Spontaneous
  Country: US (occurrence: US)
  Receive Date: 20170626
  Receipt Date: 20170626
  Transmission Date: 20170830
  Serious: Yes (Hospitalization)
  Sender: FDA-Public Use
  Company Number: None

PATIENT
  Age: 42 Year
  Sex: Female

DRUGS (11)
  1. MIRENA [Concomitant]
     Active Substance: LEVONORGESTREL
  2. FERROUS SULFATE. [Concomitant]
     Active Substance: FERROUS SULFATE
  3. SPIRONOLACTONE. [Concomitant]
     Active Substance: SPIRONOLACTONE
  4. VALPROIC ACID. [Concomitant]
     Active Substance: VALPROIC ACID
  5. VELETRI [Concomitant]
     Active Substance: EPOPROSTENOL
  6. FUROSEMIDE. [Concomitant]
     Active Substance: FUROSEMIDE
  7. IMIPRAMINE [Concomitant]
     Active Substance: IMIPRAMINE
  8. OPSUMIT [Suspect]
     Active Substance: MACITENTAN
     Indication: PULMONARY ARTERIAL HYPERTENSION
     Route: 048
     Dates: start: 20170503
  9. LOXAPINE. [Concomitant]
     Active Substance: LOXAPINE
  10. METFORMIN [Concomitant]
     Active Substance: METFORMIN HYDROCHLORIDE
  11. WARFARIN [Concomitant]
     Active Substance: WARFARIN

REACTIONS (2)
  - Device related infection [None]
  - Cellulitis [None]

NARRATIVE: CASE EVENT DATE: 20170621
